FAERS Safety Report 6519175-3 (Version None)
Quarter: 2009Q4

REPORT INFORMATION
  Report Type: 
  Country: None (occurrence: None)
  Receive Date: 20091228
  Receipt Date: 20091222
  Transmission Date: 20100525
  Serious: Yes (Life-Threatening, Hospitalization)
  Sender: FDA-Public Use
  Company Number: FR-SANOFI-AVENTIS-2009SA010396

PATIENT
  Age: 70 Year
  Sex: Female

DRUGS (14)
  1. PLAVIX [Suspect]
     Indication: CEREBROVASCULAR ACCIDENT
     Route: 048
     Dates: end: 20080904
  2. KARDEGIC [Suspect]
     Route: 048
     Dates: end: 20080904
  3. KARDEGIC [Suspect]
     Route: 048
     Dates: start: 20080901
  4. ARIXTRA [Suspect]
     Indication: CEREBROVASCULAR ACCIDENT
     Route: 042
     Dates: end: 20080904
  5. TRACLEER [Concomitant]
     Route: 048
  6. TRIMEBUTINE [Concomitant]
     Indication: DRUG USE FOR UNKNOWN INDICATION
     Route: 048
  7. DOLIPRANE [Concomitant]
     Indication: DRUG USE FOR UNKNOWN INDICATION
     Route: 048
  8. ATARAX [Concomitant]
     Indication: DRUG USE FOR UNKNOWN INDICATION
     Route: 048
  9. DEPAKINE CHRONO [Concomitant]
     Indication: DRUG USE FOR UNKNOWN INDICATION
     Route: 048
  10. SPECIAFOLDINE [Concomitant]
     Indication: DRUG USE FOR UNKNOWN INDICATION
     Route: 048
  11. ROSUVASTATIN CALCIUM [Concomitant]
     Route: 048
  12. GAVISCON [Concomitant]
     Indication: DRUG USE FOR UNKNOWN INDICATION
     Route: 048
  13. NITRODERM [Concomitant]
     Indication: ISCHAEMIC CARDIOMYOPATHY
     Route: 003
  14. STILNOX [Concomitant]
     Indication: DRUG USE FOR UNKNOWN INDICATION
     Route: 048

REACTIONS (5)
  - ANAEMIA [None]
  - HAEMATEMESIS [None]
  - HYPOVOLAEMIC SHOCK [None]
  - MELAENA [None]
  - OESOPHAGITIS ULCERATIVE [None]
